FAERS Safety Report 4449057-2 (Version None)
Quarter: 2004Q3

REPORT INFORMATION
  Report Type: 
  Country: None (occurrence: None)
  Receive Date: 20040913
  Receipt Date: 20040827
  Transmission Date: 20050211
  Serious: Yes (Hospitalization, Other)
  Sender: FDA-Public Use
  Company Number: 2004061136

PATIENT
  Age: 68 Year
  Sex: Male
  Weight: 82.1011 kg

DRUGS (5)
  1. LIPITOR [Suspect]
     Indication: BLOOD CHOLESTEROL INCREASED
     Dosage: 10 MG (10 MG, 1 IN 1 D), ORAL
     Route: 048
     Dates: end: 20040823
  2. TICLID [Suspect]
     Indication: ILL-DEFINED DISORDER
     Dates: start: 20040720
  3. AMLODIPINE BESYLATE [Concomitant]
  4. IRBESARTAN (IRBESARTAN) [Concomitant]
  5. ALL OTHER THERAPEUTIC PRODUCTS (ALL OTHER THERAPEUTIC PRODUCTS) [Concomitant]

REACTIONS (4)
  - ARTHRALGIA [None]
  - CONTUSION [None]
  - CORONARY ARTERY OCCLUSION [None]
  - MUSCULOSKELETAL STIFFNESS [None]
